FAERS Safety Report 7495391-1 (Version None)
Quarter: 2011Q2

REPORT INFORMATION
  Report Type: 
  Country: None (occurrence: None)
  Receive Date: 20110513
  Receipt Date: 20110503
  Transmission Date: 20111010
  Serious: Yes (Hospitalization)
  Sender: FDA-Public Use
  Company Number: 1000020753

PATIENT
  Age: 87 Year
  Sex: Female

DRUGS (9)
  1. ACETAMINOPHEN [Concomitant]
  2. ASPIRIN [Concomitant]
  3. LANSOPRAZOLE [Concomitant]
  4. SIMVASTATIN [Concomitant]
  5. BIMATOPROST (BIMATOPROST) [Concomitant]
  6. CITALOPRAM HYDROBROMIDE [Suspect]
     Indication: DEPRESSION
     Dosage: 10 MG (10 MG, 1 IN 1 D), ORAL
     Route: 048
     Dates: start: 20110228, end: 20110317
  7. CITALOPRAM HYDROBROMIDE [Suspect]
     Indication: ANXIETY
     Dosage: 10 MG (10 MG, 1 IN 1 D), ORAL
     Route: 048
     Dates: start: 20110228, end: 20110317
  8. BRIMONIDINE TARTRATE [Concomitant]
  9. CALCICHEW D3 (CALCIUM CARBONATE, CHOLECALCIFEROL) [Concomitant]

REACTIONS (2)
  - PRESYNCOPE [None]
  - HYPONATRAEMIA [None]
